FAERS Safety Report 24533117 (Version 2)
Quarter: 2024Q4

REPORT INFORMATION
  Report Type: Report from Study
  Country: EG (occurrence: EG)
  Receive Date: 20241022
  Receipt Date: 20241224
  Transmission Date: 20250114
  Serious: No
  Sender: SANDOZ
  Company Number: EG-SANDOZ-SDZ2024EG088697

PATIENT
  Sex: Male

DRUGS (2)
  1. OMNITROPE [Suspect]
     Active Substance: SOMATROPIN
     Indication: Short stature
     Dosage: UNK, ??-FEB-2022 OR FEB 2021
     Route: 058
  2. OMNITROPE [Suspect]
     Active Substance: SOMATROPIN
     Indication: Growth hormone deficiency
     Dosage: UNK
     Route: 058
     Dates: start: 20220120

REACTIONS (3)
  - Drug administered in wrong device [Unknown]
  - Expired device used [Unknown]
  - Off label use [Unknown]
